FAERS Safety Report 7396782-X (Version None)
Quarter: 2011Q2

REPORT INFORMATION
  Report Type: 
  Country: None (occurrence: None)
  Receive Date: 20110406
  Receipt Date: 20110324
  Transmission Date: 20111010
  Serious: Yes (Hospitalization)
  Sender: FDA-Public Use
  Company Number: US-JNJFOC-20110203220

PATIENT
  Sex: Female
  Weight: 10.9 kg

DRUGS (7)
  1. IRON [Suspect]
     Indication: PRODUCT USED FOR UNKNOWN INDICATION
  2. INFLIXIMAB, RECOMBINANT [Suspect]
     Indication: INFLAMMATORY BOWEL DISEASE
     Route: 042
  3. LEUKINE [Concomitant]
  4. ANTIBIOTICS [Concomitant]
  5. PREVACID [Suspect]
     Indication: PRODUCT USED FOR UNKNOWN INDICATION
  6. MICONAZOLE [Concomitant]
  7. LEUKINE [Concomitant]

REACTIONS (3)
  - IRON DEFICIENCY ANAEMIA [None]
  - ROTAVIRUS INFECTION [None]
  - CLOSTRIDIAL INFECTION [None]
